FAERS Safety Report 7860848-8 (Version None)
Quarter: 2011Q4

REPORT INFORMATION
  Report Type: 
  Country: None (occurrence: None)
  Receive Date: 20111027
  Receipt Date: 20111022
  Transmission Date: 20120403
  Serious: Yes (Hospitalization)
  Sender: FDA-Public Use
  Company Number: US-SANOFI-AVENTIS-2011SA070211

PATIENT
  Age: 77 Year
  Sex: Female

DRUGS (2)
  1. LANTUS [Suspect]
     Dosage: DOSE:14 UNIT(S)
     Route: 058
     Dates: start: 20010101
  2. NOVOLOG [Concomitant]

REACTIONS (3)
  - PRODUCT QUALITY ISSUE [None]
  - CHEST PAIN [None]
  - BLOOD GLUCOSE INCREASED [None]
